FAERS Safety Report 5901211-6 (Version None)
Quarter: 2008Q3

REPORT INFORMATION
  Report Type: 
  Country: None (occurrence: None)
  Receive Date: 20080929
  Receipt Date: 20080609
  Transmission Date: 20090109
  Serious: No
  Sender: FDA-Public Use
  Company Number: US-BRISTOL-MYERS SQUIBB COMPANY-14220750

PATIENT
  Age: 49 Year
  Sex: Female
  Weight: 86 kg

DRUGS (2)
  1. ORENCIA [Suspect]
     Indication: RHEUMATOID ARTHRITIS
     Dosage: LAST INFUSION ON 02JUN08
     Route: 042
     Dates: start: 20071201, end: 20080602
  2. METOPROLOL [Concomitant]

REACTIONS (3)
  - EYELID OEDEMA [None]
  - SUNBURN [None]
  - SWELLING FACE [None]
